FAERS Safety Report 25767998 (Version 1)
Quarter: 2025Q3

REPORT INFORMATION
  Report Type: Spontaneous
  Country: US (occurrence: US)
  Receive Date: 20250905
  Receipt Date: 20250905
  Transmission Date: 20251020
  Serious: No
  Sender: DOMPE FARMACEUTICI
  Company Number: US-FARMAPROD-202505-1698

PATIENT
  Sex: Male

DRUGS (15)
  1. OXERVATE [Suspect]
     Active Substance: CENEGERMIN-BKBJ
     Indication: Hypoaesthesia eye
     Route: 047
     Dates: start: 20250513
  2. ONDANSETRON [Concomitant]
     Active Substance: ONDANSETRON
  3. TUMS [Concomitant]
     Active Substance: CALCIUM CARBONATE
  4. ACETAMINOPHEN [Concomitant]
     Active Substance: ACETAMINOPHEN
  5. IBUPROFEN [Concomitant]
     Active Substance: IBUPROFEN
  6. METOPROLOL SUCCINATE [Concomitant]
     Active Substance: METOPROLOL SUCCINATE
  7. ATORVASTATIN CALCIUM [Concomitant]
     Active Substance: ATORVASTATIN CALCIUM
  8. RAMIPRIL [Concomitant]
     Active Substance: RAMIPRIL
  9. DEPAKOTE [Concomitant]
     Active Substance: DIVALPROEX SODIUM
  10. ASPIRIN [Concomitant]
     Active Substance: ASPIRIN
  11. FOLINIC-PLUS [Concomitant]
  12. VITAMIN D3 [Concomitant]
     Active Substance: CHOLECALCIFEROL
  13. VITAMIN C [Concomitant]
     Active Substance: ASCORBIC ACID
  14. MAGNESIUM [Concomitant]
     Active Substance: MAGNESIUM
  15. SYSTANE (HYPROMELLOSE 2910 (4000 MPA.S)) [Concomitant]
     Active Substance: HYPROMELLOSE 2910 (4000 MPA.S)

REACTIONS (2)
  - Accidental overdose [Unknown]
  - Dry eye [Unknown]
